FAERS Safety Report 21165705 (Version 1)
Quarter: 2022Q3

REPORT INFORMATION
  Report Type: Report from Study
  Country: US (occurrence: US)
  Receive Date: 20220803
  Receipt Date: 20220803
  Transmission Date: 20221027
  Serious: Yes (Hospitalization, Other)
  Sender: FDA-Public Use
  Company Number: US-TAKEDA-US202023085

PATIENT
  Sex: Female

DRUGS (1)
  1. HUMAN IMMUNOGLOBULIN G [Suspect]
     Active Substance: HUMAN IMMUNOGLOBULIN G
     Indication: Immunodeficiency common variable
     Route: 065

REACTIONS (11)
  - Rheumatoid arthritis [Recovering/Resolving]
  - Pneumonia [Recovering/Resolving]
  - Sepsis [Recovering/Resolving]
  - Myocardial infarction [Recovering/Resolving]
  - Carbon monoxide poisoning [Recovering/Resolving]
  - Organ failure [Recovering/Resolving]
  - Drug interaction [Recovering/Resolving]
  - Injury associated with device [Recovering/Resolving]
  - Weight decreased [Recovering/Resolving]
  - Scar [Recovering/Resolving]
  - Vomiting [Recovering/Resolving]
